FAERS Safety Report 21785856 (Version 1)
Quarter: 2022Q4

REPORT INFORMATION
  Report Type: Spontaneous
  Country: US (occurrence: US)
  Receive Date: 20221227
  Receipt Date: 20221227
  Transmission Date: 20230112
  Serious: No
  Sender: FDA-Public Use
  Company Number: US-drreddys-SPO/USA/22/0158285

PATIENT
  Age: 58 Year

DRUGS (1)
  1. ZENATANE [Suspect]
     Active Substance: ISOTRETINOIN
     Indication: Acne
     Dosage: RMA ISSUE DATE: 25 AUGUST 2022 09:26:17 AM; 02 NOVEMBER 2022 09:16:53 AM

REACTIONS (3)
  - Headache [Unknown]
  - Visual impairment [Unknown]
  - Abdominal pain [Unknown]
